FAERS Safety Report 10445405 (Version 1)
Quarter: 2014Q3

REPORT INFORMATION
  Report Type: Spontaneous
  Country: IN (occurrence: IN)
  Receive Date: 20140910
  Receipt Date: 20140910
  Transmission Date: 20150326
  Serious: Yes (Hospitalization)
  Sender: FDA-Public Use
  Company Number: IN-VIIV HEALTHCARE LIMITED-B1031574A

PATIENT
  Age: 47 Year
  Sex: Male

DRUGS (3)
  1. NEVIRAPINE. [Concomitant]
     Active Substance: NEVIRAPINE
     Indication: HIV INFECTION
     Route: 065
  2. LAMIVUDINE-HIV [Concomitant]
     Active Substance: LAMIVUDINE
     Indication: HIV INFECTION
     Route: 065
  3. ZIDOVUDINE. [Suspect]
     Active Substance: ZIDOVUDINE
     Indication: HIV INFECTION
     Route: 065

REACTIONS (11)
  - Dizziness [Unknown]
  - Haematocrit decreased [Unknown]
  - Hepatomegaly [Unknown]
  - Anaemia [Recovered/Resolved]
  - Head discomfort [Unknown]
  - Haemoglobin decreased [Unknown]
  - Mean cell haemoglobin concentration decreased [Unknown]
  - Mean cell haemoglobin [Unknown]
  - Weight decreased [Unknown]
  - Decreased appetite [Unknown]
  - Splenomegaly [Unknown]
